FAERS Safety Report 6965377-1 (Version None)
Quarter: 2010Q3

REPORT INFORMATION
  Report Type: 
  Country: None (occurrence: None)
  Receive Date: 20100903
  Receipt Date: 20100825
  Transmission Date: 20110219
  Serious: Yes (Hospitalization)
  Sender: FDA-Public Use
  Company Number: A0839466A

PATIENT
  Age: 54 Year
  Sex: Male

DRUGS (4)
  1. AVANDIA [Suspect]
     Dosage: 8MG PER DAY
     Route: 065
     Dates: start: 20020101, end: 20071208
  2. COZAAR [Concomitant]
  3. LIPITOR [Concomitant]
  4. OXAZEPAM [Concomitant]

REACTIONS (4)
  - CARDIAC MURMUR [None]
  - CORONARY ARTERY DISEASE [None]
  - HYPERLIPIDAEMIA [None]
  - MYOCARDIAL INFARCTION [None]
